FAERS Safety Report 21298140 (Version 2)
Quarter: 2022Q3

REPORT INFORMATION
  Report Type: Spontaneous
  Country: DE (occurrence: DE)
  Receive Date: 20220906
  Receipt Date: 20220920
  Transmission Date: 20221026
  Serious: Yes (Life-Threatening, Hospitalization)
  Sender: FDA-Public Use
  Company Number: DE-BAYER-2022A124557

PATIENT
  Sex: Female

DRUGS (1)
  1. MIRENA [Suspect]
     Active Substance: LEVONORGESTREL
     Dosage: 20?G/DAY
     Route: 015
     Dates: start: 20220901, end: 20220902

REACTIONS (3)
  - Allergic respiratory symptom [None]
  - Tracheal oedema [None]
  - Choking sensation [None]

NARRATIVE: CASE EVENT DATE: 20220902
